FAERS Safety Report 8788764 (Version 2)
Quarter: 2012Q4

REPORT INFORMATION
  Report Type: Report from Study
  Country: US (occurrence: US)
  Receive Date: 20120915
  Receipt Date: 20120918
  Transmission Date: 20130627
  Serious: Yes (Other)
  Sender: FDA-Public Use
  Company Number: US-ABBOTT-12P-163-0976850-00

PATIENT
  Age: 63 None
  Sex: Female

DRUGS (9)
  1. HUMIRA [Suspect]
     Indication: RHEUMATOID ARTHRITIS
  2. PREDNISONE [Concomitant]
     Indication: RHEUMATOID ARTHRITIS
     Dosage: 7mg daily
  3. LEVOTHYROXINE [Concomitant]
     Indication: THYROID DISORDER
  4. LEXAPRO [Concomitant]
     Indication: PAIN
  5. LEXAPRO [Concomitant]
     Indication: DEPRESSION
  6. SINGULAIR [Concomitant]
     Indication: COUGH
     Dates: start: 201203
  7. OMEPRAZOLE [Concomitant]
     Indication: GASTROOESOPHAGEAL REFLUX DISEASE
     Dates: start: 201203
  8. WARFARIN [Concomitant]
     Indication: THROMBOSIS PROPHYLAXIS
     Dosage: 2.5 mg daily
  9. HYDROCODONE/APAP [Concomitant]
     Indication: PROCEDURAL PAIN
     Dosage: 7.5/325 mg every 5 hours ( 1 tab)

REACTIONS (23)
  - Ill-defined disorder [Recovered/Resolved]
  - Knee arthroplasty [Not Recovered/Not Resolved]
  - Injection site pain [Unknown]
  - Foot operation [Unknown]
  - Cholelithiasis [Recovered/Resolved]
  - Medical device removal [Unknown]
  - Toe operation [Unknown]
  - Thyroid disorder [Unknown]
  - Abdominal pain [Recovering/Resolving]
  - Depression [Unknown]
  - Cough [Recovering/Resolving]
  - Gastrooesophageal reflux disease [Unknown]
  - Coeliac disease [Not Recovered/Not Resolved]
  - Device malfunction [Unknown]
  - Incorrect dose administered [Unknown]
  - Injection site pain [Unknown]
  - Swelling [Not Recovered/Not Resolved]
  - Joint swelling [Not Recovered/Not Resolved]
  - Nausea [Recovering/Resolving]
  - Fatigue [Recovering/Resolving]
  - Pruritus generalised [Recovering/Resolving]
  - Abdominal pain [Recovered/Resolved]
  - Knee arthroplasty [Recovered/Resolved]
